FAERS Safety Report 6199187-2 (Version None)
Quarter: 2009Q2

REPORT INFORMATION
  Report Type: 
  Country: None (occurrence: None)
  Receive Date: 20090522
  Receipt Date: 20090420
  Transmission Date: 20091009
  Serious: No
  Sender: FDA-Public Use
  Company Number: A0779675A

PATIENT
  Age: 39 Year
  Sex: Male

DRUGS (2)
  1. VERAMYST [Suspect]
     Dosage: 2SPR PER DAY
     Route: 045
     Dates: start: 20090405
  2. NO CONCURRENT MEDICATION [Concomitant]

REACTIONS (3)
  - FEELING JITTERY [None]
  - HEART RATE INCREASED [None]
  - INSOMNIA [None]
